FAERS Safety Report 20768456 (Version 3)
Quarter: 2022Q2

REPORT INFORMATION
  Report Type: Spontaneous
  Country: AT (occurrence: AT)
  Receive Date: 20220429
  Receipt Date: 20220608
  Transmission Date: 20220721
  Serious: Yes (Other)
  Sender: FDA-Public Use
  Company Number: AT-ROCHE-3081939

PATIENT
  Age: 47 Year
  Sex: Female

DRUGS (6)
  1. PACLITAXEL [Suspect]
     Active Substance: PACLITAXEL
     Indication: Non-small cell lung cancer
     Route: 065
  2. AVASTIN [Suspect]
     Active Substance: BEVACIZUMAB
     Indication: Non-small cell lung cancer
     Route: 065
  3. AVASTIN [Suspect]
     Active Substance: BEVACIZUMAB
     Route: 065
  4. CARBOPLATIN [Suspect]
     Active Substance: CARBOPLATIN
     Indication: Non-small cell lung cancer
     Route: 065
  5. TECENTRIQ [Suspect]
     Active Substance: ATEZOLIZUMAB
     Indication: Non-small cell lung cancer
     Route: 065
  6. TECENTRIQ [Suspect]
     Active Substance: ATEZOLIZUMAB
     Route: 065

REACTIONS (8)
  - Epistaxis [Unknown]
  - Immune-mediated pancreatitis [Unknown]
  - Alopecia [Unknown]
  - Oligoastrocytoma [Unknown]
  - Hypoaesthesia [Unknown]
  - Immune-mediated enterocolitis [Unknown]
  - Febrile neutropenia [Unknown]
  - Asthenia [Unknown]

NARRATIVE: CASE EVENT DATE: 20200601
